FAERS Safety Report 26180876 (Version 1)
Quarter: 2025Q4

REPORT INFORMATION
  Report Type: Spontaneous
  Country: US (occurrence: US)
  Receive Date: 20251221
  Receipt Date: 20251221
  Transmission Date: 20260117
  Serious: Yes (Other)
  Sender: NOVO NORDISK
  Company Number: US-NOVOPROD-1587899

PATIENT
  Sex: Male

DRUGS (1)
  1. NOVOLOG [Suspect]
     Active Substance: INSULIN ASPART
     Indication: Diabetes mellitus
     Dosage: 19 IU, QD, 7 UNITS IN MORNING, 5 UNITS WITH SNACK, 7 UNITS AT NIGHT WITH DINNER
     Route: 058
     Dates: start: 2024

REACTIONS (1)
  - Cataract [Unknown]
